FAERS Safety Report 5513819-0 (Version None)
Quarter: 2007Q4

REPORT INFORMATION
  Report Type: 
  Country: None (occurrence: None)
  Receive Date: 20071113
  Receipt Date: 20071106
  Transmission Date: 20080405
  Serious: Yes (Death)
  Sender: FDA-Public Use
  Company Number: GB-ELI_LILLY_AND_COMPANY-GB200711001088

PATIENT
  Sex: Female

DRUGS (7)
  1. OLANZAPINE [Suspect]
     Indication: MAJOR DEPRESSION
     Dosage: 5 MG, 2/D
     Route: 048
     Dates: start: 20070913
  2. PAROXETINE [Concomitant]
     Indication: DEPRESSION
     Dosage: 30 MG, 3/D
     Route: 048
     Dates: start: 20060101
  3. ASPIRIN [Concomitant]
     Indication: ANTIPLATELET THERAPY
     Dosage: 75 MG, UNK
     Route: 048
     Dates: start: 20070907
  4. DIAZEPAM [Concomitant]
     Dosage: 2 MG, AS NEEDED
  5. GLICLAZIDE [Concomitant]
     Indication: DIABETES MELLITUS
     Dosage: 40 MG, UNK
     Route: 048
  6. METFORMIN HCL [Concomitant]
     Indication: DIABETES MELLITUS
     Dosage: 500 MG, 2/D
     Route: 048
  7. MIRTAZAPINE [Concomitant]
     Indication: DEPRESSION
     Dosage: 15 MG, UNK
     Route: 048
     Dates: start: 20070906

REACTIONS (1)
  - PULMONARY EMBOLISM [None]
